FAERS Safety Report 8377256-6 (Version None)
Quarter: 2012Q2

REPORT INFORMATION
  Report Type: 
  Country: None (occurrence: None)
  Receive Date: 20120521
  Receipt Date: 20120509
  Transmission Date: 20120825
  Serious: Yes (Hospitalization)
  Sender: FDA-Public Use
  Company Number: US-008420

PATIENT
  Age: 13 Year
  Sex: Male

DRUGS (1)
  1. HGH (NOT SPECIFIED) [Suspect]
     Indication: GROWTH HORMONE DEFICIENCY

REACTIONS (1)
  - OSTEOCHONDROSIS [None]
